FAERS Safety Report 12717712 (Version 1)
Quarter: 2016Q3

REPORT INFORMATION
  Report Type: Spontaneous
  Country: FR (occurrence: FR)
  Receive Date: 20160906
  Receipt Date: 20160906
  Transmission Date: 20161109
  Serious: Yes (Other)
  Sender: FDA-Public Use
  Company Number: FR-CONCORDIA PHARMACEUTICALS INC.-CO-PL-FR-2016-456

PATIENT
  Age: 68 Year
  Sex: Female

DRUGS (8)
  1. TENORMIN [Concomitant]
     Active Substance: ATENOLOL
  2. INIPOMP [Concomitant]
     Active Substance: PANTOPRAZOLE SODIUM
  3. CRESTOR [Concomitant]
     Active Substance: ROSUVASTATIN CALCIUM
  4. STILNOX [Concomitant]
     Active Substance: ZOLPIDEM TARTRATE
  5. AERIUS [Concomitant]
     Active Substance: DESLORATADINE
  6. PLAQUENIL [Suspect]
     Active Substance: HYDROXYCHLOROQUINE SULFATE
     Indication: PORPHYRIA
     Route: 048
     Dates: start: 20160622, end: 20160630
  7. FLUDEX [Concomitant]
     Active Substance: INDAPAMIDE
  8. DOLIPRANE [Concomitant]
     Active Substance: ACETAMINOPHEN

REACTIONS (1)
  - Hepatitis acute [Recovered/Resolved]

NARRATIVE: CASE EVENT DATE: 20160630
